FAERS Safety Report 8799351 (Version 2)
Quarter: 2013Q3

REPORT INFORMATION
  Report Type: Spontaneous
  Country: AU (occurrence: AU)
  Receive Date: 20120920
  Receipt Date: 20130916
  Transmission Date: 20140515
  Serious: Yes (Hospitalization, Other)
  Sender: FDA-Public Use
  Company Number: AU-BAXTER-2012BAX016914

PATIENT
  Age: 26 Year
  Sex: Male

DRUGS (1)
  1. TISSEEL FROZEN [Suspect]
     Indication: GRAFT DELAMINATION
     Route: 065

REACTIONS (3)
  - Arthritis bacterial [Recovered/Resolved]
  - Staphylococcal infection [Recovered/Resolved]
  - Post procedural complication [Recovered/Resolved]
